FAERS Safety Report 7002989-3 (Version None)
Quarter: 2010Q3

REPORT INFORMATION
  Report Type: 
  Country: None (occurrence: None)
  Receive Date: 20100920
  Receipt Date: 20100708
  Transmission Date: 20110219
  Serious: No
  Sender: FDA-Public Use
  Company Number: US-ASTRAZENECA-2010SE31806

PATIENT
  Sex: Female

DRUGS (1)
  1. SEROQUEL [Suspect]
     Indication: INJURY
     Route: 048
     Dates: start: 20100702, end: 20100705

REACTIONS (2)
  - ABASIA [None]
  - MUSCULAR WEAKNESS [None]
